FAERS Safety Report 23159686 (Version 1)
Quarter: 2023Q4

REPORT INFORMATION
  Report Type: Spontaneous
  Country: US (occurrence: US)
  Receive Date: 20231108
  Receipt Date: 20231108
  Transmission Date: 20240109
  Serious: Yes (Other)
  Sender: FDA-Public Use
  Company Number: US-Calliditas-2023CAL01382

PATIENT
  Age: 58 Year
  Sex: Male
  Weight: 82.99 kg

DRUGS (1)
  1. TARPEYO [Suspect]
     Active Substance: BUDESONIDE
     Indication: IgA nephropathy
     Route: 048
     Dates: start: 20230419

REACTIONS (3)
  - Diabetes mellitus [Unknown]
  - Visual impairment [Unknown]
  - Hypertension [Unknown]
